FAERS Safety Report 15539721 (Version 2)
Quarter: 2018Q4

REPORT INFORMATION
  Report Type: Spontaneous
  Country: NL (occurrence: NL)
  Receive Date: 20181023
  Receipt Date: 20181031
  Transmission Date: 20190205
  Serious: Yes (Death, Life-Threatening, Other)
  Sender: FDA-Public Use
  Company Number: NL-AUROBINDO-AUR-APL-2018-031022

PATIENT
  Age: 69 Year
  Sex: Female

DRUGS (16)
  1. CINACALCET. [Concomitant]
     Active Substance: CINACALCET
     Indication: HYPERPHOSPHATAEMIA
  2. PIPERACILIN/TAZOBACTAM [Concomitant]
     Active Substance: PIPERACILLIN SODIUM\TAZOBACTAM SODIUM
     Indication: PRODUCT USED FOR UNKNOWN INDICATION
     Dosage: 4000/500 MG, BID 2
     Route: 042
  3. PREDNISOLONE. [Suspect]
     Active Substance: PREDNISOLONE
     Indication: PRODUCT USED FOR UNKNOWN INDICATION
     Dosage: 5 MILLIGRAM, DAILY
     Route: 065
  4. PREDNISOLONE. [Suspect]
     Active Substance: PREDNISOLONE
     Dosage: 2.5 MILLIGRAM, DAILY
     Route: 065
  5. CINACALCET. [Concomitant]
     Active Substance: CINACALCET
     Indication: HYPERCALCAEMIA
     Dosage: 90 MG, ONCE A DAY
     Route: 065
  6. CINACALCET. [Concomitant]
     Active Substance: CINACALCET
     Indication: HYPERPARATHYROIDISM
  7. ALFACALCIDOL [Suspect]
     Active Substance: ALFACALCIDOL
     Indication: PRODUCT USED FOR UNKNOWN INDICATION
     Dosage: 0.25 MICROGRAM, DAILY
     Route: 065
  8. SODIUM THIOSULFATE [Concomitant]
     Active Substance: SODIUM THIOSULFATE
     Indication: PRODUCT USED FOR UNKNOWN INDICATION
     Dosage: 25 G DURING EACH DIALYSIS SESSION
     Route: 065
  9. PREGABALIN. [Concomitant]
     Active Substance: PREGABALIN
     Indication: PAIN
     Dosage: 2DD25 MG
     Route: 065
  10. OXYCODONE [Suspect]
     Active Substance: OXYCODONE
     Indication: PAIN
     Dosage: 4-6DD10MG
     Route: 048
  11. FENTANYL. [Suspect]
     Active Substance: FENTANYL
     Indication: PAIN
     Dosage: 3DD100UG
     Route: 065
     Dates: start: 201707
  12. SEVELAMER [Concomitant]
     Active Substance: SEVELAMER
     Indication: HYPERCALCAEMIA
  13. OXYCODONE [Suspect]
     Active Substance: OXYCODONE
     Dosage: 2DD40MG, CONTROLLED RELEASE
     Route: 065
     Dates: start: 201707
  14. PARACETAMOL [Concomitant]
     Active Substance: ACETAMINOPHEN
     Indication: PAIN
     Dosage: 4DD1000MG
     Route: 065
  15. SEVELAMER [Concomitant]
     Active Substance: SEVELAMER
     Indication: HYPERPHOSPHATAEMIA
     Dosage: PHOSPHATE BINDER; 80MG ONCE A DAY
     Route: 065
  16. SEVELAMER [Concomitant]
     Active Substance: SEVELAMER
     Indication: HYPERPARATHYROIDISM

REACTIONS (5)
  - Product use in unapproved indication [Unknown]
  - Pneumonia aspiration [Fatal]
  - Calciphylaxis [Fatal]
  - Breast necrosis [Fatal]
  - Sepsis [Fatal]

NARRATIVE: CASE EVENT DATE: 2017
